FAERS Safety Report 7139587-7 (Version None)
Quarter: 2010Q4

REPORT INFORMATION
  Report Type: 
  Country: None (occurrence: None)
  Receive Date: 20101206
  Receipt Date: 20101202
  Transmission Date: 20110411
  Serious: Yes (Death, Hospitalization)
  Sender: FDA-Public Use
  Company Number: ZA-B.I. PHARMACEUTICALS,INC./RIDGEFIELD-2008-BP-04636BP

PATIENT
  Sex: Male
  Weight: 7 kg

DRUGS (8)
  1. VIRAMUNE [Suspect]
     Indication: HIV INFECTION
     Dosage: 120 MG
     Route: 048
     Dates: start: 20080128, end: 20080319
  2. LAMIVUDINE (EPIVIR HBV) [Suspect]
     Indication: HIV INFECTION
     Dosage: 60 MG
     Route: 048
     Dates: start: 20080128, end: 20080319
  3. ZIDOVUDINE [Suspect]
     Indication: HIV INFECTION
     Dosage: 140 MG
     Route: 048
     Dates: start: 20080128, end: 20080319
  4. COTRIMOXAZOLE [Concomitant]
  5. MULTI-VITAMINS [Concomitant]
  6. DAKTARIN ORAL GEL [Concomitant]
     Route: 048
  7. BETAMETHASONE [Concomitant]
  8. HYDROCORTISONE [Concomitant]

REACTIONS (4)
  - BRONCHOPNEUMONIA [None]
  - IMMUNE RECONSTITUTION SYNDROME [None]
  - LOWER RESPIRATORY TRACT INFECTION [None]
  - TUBERCULOSIS [None]
